FAERS Safety Report 21695661 (Version 3)
Quarter: 2023Q1

REPORT INFORMATION
  Report Type: Report from Study
  Country: US (occurrence: US)
  Receive Date: 20221207
  Receipt Date: 20230307
  Transmission Date: 20230418
  Serious: Yes (Hospitalization)
  Sender: FDA-Public Use
  Company Number: US-ABBVIE-4191134

PATIENT
  Sex: Female

DRUGS (2)
  1. HUMIRA [Suspect]
     Active Substance: ADALIMUMAB
     Indication: Rheumatoid arthritis
     Dosage: CF?FORM STRENGTH 40 MILLIGRAM
     Route: 058
  2. Covid-19 Vaccine [Concomitant]
     Indication: COVID-19 immunisation
     Dosage: ONE IN ONCE
     Route: 030

REACTIONS (3)
  - Fall [Unknown]
  - COVID-19 [Unknown]
  - Rib fracture [Unknown]
